FAERS Safety Report 14705513 (Version 1)
Quarter: 2018Q2

REPORT INFORMATION
  Report Type: Other
  Country: ES (occurrence: ES)
  Receive Date: 20180402
  Receipt Date: 20180402
  Transmission Date: 20180711
  Serious: Yes (Other)
  Sender: FDA-Public Use
  Company Number: ES-GALEN LIMITED-AE-2018-0386

PATIENT
  Age: 21 Year
  Sex: Female

DRUGS (9)
  1. L-ASPARAGINASE [Suspect]
     Active Substance: ASPARAGINASE
     Indication: ACUTE LYMPHOCYTIC LEUKAEMIA
  2. METHOTREXATE. [Suspect]
     Active Substance: METHOTREXATE
     Indication: ACUTE LYMPHOCYTIC LEUKAEMIA
     Dates: end: 201208
  3. MERCAPTOPURINE. [Suspect]
     Active Substance: MERCAPTOPURINE
     Indication: ACUTE LYMPHOCYTIC LEUKAEMIA
     Dates: end: 201208
  4. DEXAMETHASONE. [Suspect]
     Active Substance: DEXAMETHASONE
     Indication: ACUTE LYMPHOCYTIC LEUKAEMIA
  5. VINCRISTINE [Suspect]
     Active Substance: VINCRISTINE
     Indication: ACUTE LYMPHOCYTIC LEUKAEMIA
  6. DAUNORUBICIN HYDROCHLORIDE. [Suspect]
     Active Substance: DAUNORUBICIN HYDROCHLORIDE
     Indication: ACUTE LYMPHOCYTIC LEUKAEMIA
  7. CYTARABINE. [Suspect]
     Active Substance: CYTARABINE
     Indication: ACUTE LYMPHOCYTIC LEUKAEMIA
  8. PREDNISONE. [Suspect]
     Active Substance: PREDNISONE
     Indication: ACUTE LYMPHOCYTIC LEUKAEMIA
  9. HYDROCORTISONE. [Suspect]
     Active Substance: HYDROCORTISONE
     Indication: ACUTE LYMPHOCYTIC LEUKAEMIA

REACTIONS (3)
  - Aborted pregnancy [Recovered/Resolved]
  - Maternal exposure during pregnancy [Recovered/Resolved]
  - Acute lymphocytic leukaemia [Recovered/Resolved]

NARRATIVE: CASE EVENT DATE: 2012
